FAERS Safety Report 8118695-8 (Version None)
Quarter: 2012Q1

REPORT INFORMATION
  Report Type: 
  Country: None (occurrence: None)
  Receive Date: 20120202
  Receipt Date: 20120118
  Transmission Date: 20120608
  Serious: Yes (Hospitalization, Other)
  Sender: FDA-Public Use
  Company Number: NSR_00332_2011

PATIENT
  Age: 50 Year
  Sex: Female

DRUGS (4)
  1. ETHANOL (ETHANOL) [Suspect]
     Indication: PRODUCT USED FOR UNKNOWN INDICATION
     Dosage: (DF)
  2. VENLAFAXINE [Suspect]
     Indication: PRODUCT USED FOR UNKNOWN INDICATION
     Dosage: (DF [14 PILLS CONTAINING 75 MG OF VELAXIN EACH (1050 MG OF VENLAFAXINE)])
  3. MIANSEGAN - MIANSERIN [Suspect]
     Indication: PRODUCT USED FOR UNKNOWN INDICATION
     Dosage: (DF [10 PILLS CONTAINING 30 MG OF MIANSEGEN EACH (30MGOF MIANSERIN)])
  4. MOCLOXIE - MOCLOBEMIDE [Suspect]
     Indication: PRODUCT USED FOR UNKNOWN INDICATION
     Dosage: (DF [30 PILLS CONTAINING 150 MG OF MOCLOXILE EACH (4500MG MOCLOBEMIDE)])

REACTIONS (10)
  - LOSS OF CONSCIOUSNESS [None]
  - ACUTE RESPIRATORY FAILURE [None]
  - INCORRECT DOSE ADMINISTERED [None]
  - TOXICITY TO VARIOUS AGENTS [None]
  - SEROTONIN SYNDROME [None]
  - HAEMOGLOBIN DECREASED [None]
  - BACTERIURIA [None]
  - ABDOMINAL PAIN LOWER [None]
  - SUICIDE ATTEMPT [None]
  - WHITE BLOOD CELL COUNT INCREASED [None]
